FAERS Safety Report 13616109 (Version 1)
Quarter: 2017Q2

REPORT INFORMATION
  Report Type: Spontaneous
  Country: ZA (occurrence: ZA)
  Receive Date: 20170606
  Receipt Date: 20170606
  Transmission Date: 20170830
  Serious: Yes (Death, Hospitalization)
  Sender: FDA-Public Use
  Company Number: ZA-TEVA-773014ISR

PATIENT
  Age: 59 Year
  Sex: Female
  Weight: 73 kg

DRUGS (27)
  1. LINEZOLID. [Suspect]
     Active Substance: LINEZOLID
     Indication: TUBERCULOSIS
     Dosage: 300 MILLIGRAM DAILY;
     Route: 048
     Dates: start: 20170406
  2. BEDAQUILINE(BDQ) [Suspect]
     Active Substance: BEDAQUILINE
     Indication: TUBERCULOSIS
     Dosage: 600 MILLIGRAM DAILY;
     Route: 065
     Dates: start: 20170406, end: 20170412
  3. BEDAQUILINE(BDQ) [Suspect]
     Active Substance: BEDAQUILINE
     Dates: start: 20161109
  4. PAS [Suspect]
     Active Substance: AMINOSALICYLIC ACID
     Indication: TUBERCULOSIS
     Dosage: IN MORNING
     Route: 048
     Dates: end: 20170412
  5. ASTHAVENT [Concomitant]
     Active Substance: ALBUTEROL SULFATE
  6. DELAMANID [Suspect]
     Active Substance: DELAMANID
     Dates: start: 20170203
  7. PYRAZINAMIDE. [Suspect]
     Active Substance: PYRAZINAMIDE
     Indication: TUBERCULOSIS
     Dates: start: 20161027
  8. PYRAZINAMIDE. [Suspect]
     Active Substance: PYRAZINAMIDE
     Dosage: 1.5 GRAM DAILY;
     Route: 048
     Dates: start: 20170406, end: 20170412
  9. BACTRIM [Concomitant]
     Active Substance: SULFAMETHOXAZOLE\TRIMETHOPRIM
  10. VITAMIN B12 [Concomitant]
     Active Substance: CYANOCOBALAMIN
  11. ENALAPRIL [Concomitant]
     Active Substance: ENALAPRIL
     Indication: HYPERTENSION
  12. ATENOLOL. [Concomitant]
     Active Substance: ATENOLOL
     Dates: start: 201702
  13. LINEZOLID. [Suspect]
     Active Substance: LINEZOLID
     Dates: start: 20161201
  14. LINEZOLID. [Suspect]
     Active Substance: LINEZOLID
  15. LINEZOLID. [Suspect]
     Active Substance: LINEZOLID
     Dates: start: 201703, end: 20170412
  16. CLOF (CLOFAZIMINE) [Suspect]
     Active Substance: CLOFAZIMINE
     Dates: start: 20161201
  17. NEVIRAPINE. [Concomitant]
     Active Substance: NEVIRAPINE
     Dates: start: 20161201
  18. LEVOTHYROXINE. [Concomitant]
     Active Substance: LEVOTHYROXINE
     Dates: start: 20170406
  19. DUMIVA [Concomitant]
     Dates: start: 20170406
  20. PYRIDOXINE [Concomitant]
     Active Substance: PYRIDOXINE
     Dates: start: 20170406
  21. DELAMANID [Suspect]
     Active Substance: DELAMANID
     Indication: TUBERCULOSIS
     Route: 048
     Dates: start: 20170406, end: 20170412
  22. SIMVASTATIN. [Concomitant]
     Active Substance: SIMVASTATIN
  23. LEVOFLOXACIN. [Suspect]
     Active Substance: LEVOFLOXACIN
     Indication: TUBERCULOSIS
     Dosage: 1 GRAM DAILY;
     Route: 048
     Dates: start: 20170406, end: 20170412
  24. CLOF (CLOFAZIMINE) [Suspect]
     Active Substance: CLOFAZIMINE
     Indication: TUBERCULOSIS
     Dosage: 100 GRAM DAILY;
     Route: 048
     Dates: start: 20170406, end: 20170412
  25. PAS [Suspect]
     Active Substance: AMINOSALICYLIC ACID
     Dates: start: 20161201
  26. AMLODIPINE [Concomitant]
     Active Substance: AMLODIPINE BESYLATE
  27. NEVIRAPINE. [Concomitant]
     Active Substance: NEVIRAPINE
     Dates: start: 20170406

REACTIONS (4)
  - Hypotension [Fatal]
  - Hypokalaemia [Fatal]
  - Anaemia [Fatal]
  - Death [Fatal]

NARRATIVE: CASE EVENT DATE: 20170410
